FAERS Safety Report 8141039-2 (Version None)
Quarter: 2012Q1

REPORT INFORMATION
  Report Type: 
  Country: None (occurrence: None)
  Receive Date: 20120216
  Receipt Date: 20120206
  Transmission Date: 20120608
  Serious: Yes (Hospitalization)
  Sender: FDA-Public Use
  Company Number: FR-MILLENNIUM PHARMACEUTICALS, INC.-2012-00946

PATIENT

DRUGS (8)
  1. POLYETHYLENE GLYCOL [Concomitant]
     Indication: CONSTIPATION
  2. ARANESP [Concomitant]
     Indication: ANTIBIOTIC PROPHYLAXIS
  3. EPOETIN [Concomitant]
     Indication: ANTIBIOTIC PROPHYLAXIS
     Dosage: UNK
  4. LEDERFOLIN                         /00566702/ [Concomitant]
     Dosage: 5 MG, UNK
     Route: 048
     Dates: start: 20111227
  5. PIPERACILLIN/TAZOBACTAM [Concomitant]
     Indication: ANTIBIOTIC PROPHYLAXIS
  6. DEXAMETHASONE [Suspect]
     Indication: MULTIPLE MYELOMA
     Dosage: 20 MG, UNK
     Route: 048
     Dates: start: 20120113, end: 20120116
  7. DURAIBUPROFEN                      /00109201/ [Concomitant]
     Indication: ANAEMIA
     Dosage: UNK
     Dates: start: 20111228
  8. VELCADE [Suspect]
     Indication: MULTIPLE MYELOMA
     Dosage: 1.3 MG/M2, UNK
     Dates: start: 20111223, end: 20120203

REACTIONS (1)
  - BACTERIAL PYELONEPHRITIS [None]
